FAERS Safety Report 5852898-8 (Version None)
Quarter: 2008Q3

REPORT INFORMATION
  Report Type: 
  Country: None (occurrence: None)
  Receive Date: 20080815
  Receipt Date: 20071119
  Transmission Date: 20090109
  Serious: Yes (Hospitalization)
  Sender: FDA-Public Use
  Company Number: 07H-163-0313493-00

PATIENT
  Age: 71 Year
  Sex: Male
  Weight: 111 kg

DRUGS (3)
  1. VANCOMYCIN HCL [Suspect]
     Indication: DRUG USE FOR UNKNOWN INDICATION
     Dosage: 1250 MG, 1 IN 24 HR, INTRAVENOUS ; 2 GM, 1 IN 24 HR, INTRAVENOUS
     Route: 042
     Dates: start: 20071103, end: 20071106
  2. VANCOMYCIN HCL [Suspect]
     Indication: DRUG USE FOR UNKNOWN INDICATION
     Dosage: 1250 MG, 1 IN 24 HR, INTRAVENOUS ; 2 GM, 1 IN 24 HR, INTRAVENOUS
     Route: 042
     Dates: start: 20071108, end: 20071111
  3. RIFAMPICIN [Concomitant]

REACTIONS (1)
  - RENAL FAILURE [None]
